FAERS Safety Report 7651686-X (Version None)
Quarter: 2011Q3

REPORT INFORMATION
  Report Type: 
  Country: None (occurrence: None)
  Receive Date: 20110802
  Receipt Date: 20110725
  Transmission Date: 20111222
  Serious: Yes (Hospitalization)
  Sender: FDA-Public Use
  Company Number: US-US-EMD SERONO, INC.-7071129

PATIENT
  Sex: Female

DRUGS (2)
  1. REBIF [Suspect]
     Indication: MULTIPLE SCLEROSIS
     Route: 058
     Dates: start: 20030101
  2. REBIF [Suspect]
     Route: 058
     Dates: start: 20060303, end: 20110601

REACTIONS (4)
  - BACK PAIN [None]
  - FLUID RETENTION [None]
  - KIDNEY INFECTION [None]
  - ARTHRALGIA [None]
